FAERS Safety Report 10552282 (Version 1)
Quarter: 2014Q4

REPORT INFORMATION
  Report Type: Spontaneous
  Country: US (occurrence: None)
  Receive Date: 20141023
  Receipt Date: 20141023
  Transmission Date: 20150529
  Serious: No
  Sender: FDA-Public Use
  Company Number: AP356-00978-SPO-US

PATIENT
  Age: 61 Year
  Sex: Male
  Weight: 145 kg

DRUGS (3)
  1. AZOR (ANTIHYPERTENSIVES) [Concomitant]
  2. CRESTOR [Concomitant]
     Active Substance: ROSUVASTATIN CALCIUM
  3. BELVIQ [Suspect]
     Active Substance: LORCASERIN HYDROCHLORIDE
     Indication: WEIGHT CONTROL
     Dosage: 2 IN 1 D
     Route: 048
     Dates: start: 20140623

REACTIONS (1)
  - Dizziness [None]

NARRATIVE: CASE EVENT DATE: 20140624
